FAERS Safety Report 6080546-3 (Version None)
Quarter: 2009Q1

REPORT INFORMATION
  Report Type: 
  Country: None (occurrence: None)
  Receive Date: 20090217
  Receipt Date: 20090213
  Transmission Date: 20090719
  Serious: Yes (Other)
  Sender: FDA-Public Use
  Company Number: A0768947A

PATIENT
  Age: 6 Month
  Sex: Male
  Weight: 10 kg

DRUGS (1)
  1. FLUTICASONE PROPIONATE [Suspect]
     Indication: BRONCHITIS
     Dosage: 2PUFF TWICE PER DAY
     Dates: start: 20071001, end: 20071201

REACTIONS (2)
  - DRUG INEFFECTIVE [None]
  - PNEUMONIA [None]
